FAERS Safety Report 14003912 (Version 2)
Quarter: 2017Q4

REPORT INFORMATION
  Report Type: Spontaneous
  Country: US (occurrence: US)
  Receive Date: 20170922
  Receipt Date: 20171123
  Transmission Date: 20180321
  Serious: No
  Sender: FDA-Public Use
  Company Number: US-JNJFOC-20170907890

PATIENT

DRUGS (1)
  1. FENTANYL TRANSDERMAL SYSTEM [Suspect]
     Active Substance: FENTANYL
     Indication: NERVOUS SYSTEM DISORDER
     Dosage: STARTED MORE THAN 10 YEARS AGO (FROM THE TIME OF THIS REPORT)
     Route: 062

REACTIONS (2)
  - Product physical issue [Unknown]
  - Product use in unapproved indication [Unknown]
